FAERS Safety Report 7722464-8 (Version None)
Quarter: 2011Q3

REPORT INFORMATION
  Report Type: 
  Country: None (occurrence: None)
  Receive Date: 20110831
  Receipt Date: 20110823
  Transmission Date: 20111222
  Serious: Yes (Hospitalization)
  Sender: FDA-Public Use
  Company Number: JP-ABBOTT-11P-087-0696299-00

PATIENT
  Sex: Female
  Weight: 49.2 kg

DRUGS (12)
  1. LOXOPROFEN SODIUM HYDRATE [Concomitant]
     Route: 048
  2. MESALAMINE [Concomitant]
     Indication: PRODUCT USED FOR UNKNOWN INDICATION
     Dosage: 3000MG DAILY
     Route: 048
  3. HUMIRA [Suspect]
     Dates: start: 20110216, end: 20110216
  4. LOXOPROFEN SODIUM HYDRATE [Concomitant]
     Indication: PRODUCT USED FOR UNKNOWN INDICATION
     Route: 062
  5. HUMIRA [Suspect]
     Route: 058
     Dates: start: 20110203, end: 20110203
  6. RABEPRAZOLE SODIUM [Concomitant]
     Indication: PRODUCT USED FOR UNKNOWN INDICATION
     Route: 048
  7. LOXOPROFEN SODIUM HYDRATE [Concomitant]
  8. AZATHIOPRINE [Concomitant]
     Indication: PRODUCT USED FOR UNKNOWN INDICATION
     Route: 048
  9. ZOLPIDEM TARTRATE [Concomitant]
     Indication: PRODUCT USED FOR UNKNOWN INDICATION
     Dosage: 10 MG DAILY
     Route: 048
  10. BROTIZOLAM [Concomitant]
     Indication: PRODUCT USED FOR UNKNOWN INDICATION
     Route: 048
  11. HUMIRA [Suspect]
     Indication: CROHN'S DISEASE
     Route: 058
     Dates: start: 20101214, end: 20101214
  12. HUMIRA [Suspect]
     Dates: start: 20110301

REACTIONS (2)
  - INTESTINAL OBSTRUCTION [None]
  - ILEAL STENOSIS [None]
